FAERS Safety Report 9338313 (Version 1)
Quarter: 2013Q2

REPORT INFORMATION
  Report Type: Spontaneous
  Country: US (occurrence: US)
  Receive Date: 20130610
  Receipt Date: 20130610
  Transmission Date: 20140414
  Serious: Yes (Hospitalization)
  Sender: FDA-Public Use
  Company Number: US-PFIZER INC-2013172231

PATIENT
  Age: 79 Year
  Sex: Female

DRUGS (4)
  1. ZOLOFT [Suspect]
     Dosage: UNK
  2. LETAIRIS [Suspect]
     Indication: COR PULMONALE CHRONIC
     Dosage: 5 MG, 1X/DAY
     Dates: start: 20121228
  3. REVATIO [Concomitant]
     Dosage: UNK
  4. TYVASO [Concomitant]
     Dosage: UNK

REACTIONS (2)
  - Dyspnoea [Unknown]
  - Night sweats [Unknown]
